FAERS Safety Report 5598205-X (Version None)
Quarter: 2008Q1

REPORT INFORMATION
  Report Type: 
  Country: None (occurrence: None)
  Receive Date: 20080117
  Receipt Date: 20080117
  Transmission Date: 20080703
  Serious: Yes (Disabling)
  Sender: FDA-Public Use
  Company Number: None

PATIENT
  Sex: Male
  Weight: 119.296 kg

DRUGS (7)
  1. IMURAN [Suspect]
     Indication: CROHN'S DISEASE
     Dosage: 150MG QD PO
     Route: 048
     Dates: start: 20060101
  2. REMICADE [Suspect]
     Indication: CROHN'S DISEASE
     Dosage: 10MG/KG OR 1200MG Q8WK IV DRIP
     Route: 041
     Dates: start: 20011001, end: 20040601
  3. REMICADE [Suspect]
     Indication: CROHN'S DISEASE
     Dosage: 10MG/KG OR 1200MG Q8WK IV DRIP
     Route: 041
     Dates: start: 20050801
  4. LISINOPRIL [Concomitant]
  5. IBUPROFEN [Concomitant]
  6. ASPIRIN [Concomitant]
  7. FLOMAX [Concomitant]

REACTIONS (1)
  - SQUAMOUS CELL CARCINOMA [None]
